FAERS Safety Report 8126947-0 (Version None)
Quarter: 2012Q1

REPORT INFORMATION
  Report Type: 
  Country: None (occurrence: None)
  Receive Date: 20120210
  Receipt Date: 20120202
  Transmission Date: 20120608
  Serious: Yes (Hospitalization, Other)
  Sender: FDA-Public Use
  Company Number: HU-BAYER-2011-119768

PATIENT
  Sex: Female

DRUGS (1)
  1. MIRENA [Suspect]
     Indication: CONTRACEPTION
     Dosage: 20 MCG/24HR, CONT
     Route: 015
     Dates: start: 20110517, end: 20110823

REACTIONS (9)
  - MENOMETRORRHAGIA [None]
  - MALAISE [None]
  - ANAPHYLACTIC REACTION [None]
  - OEDEMA PERIPHERAL [None]
  - ABDOMINAL PAIN [None]
  - GENERALISED OEDEMA [None]
  - DYSPNOEA [None]
  - ABDOMINAL DISTENSION [None]
  - BACK PAIN [None]
